FAERS Safety Report 6786895-5 (Version None)
Quarter: 2010Q2

REPORT INFORMATION
  Report Type: 
  Country: None (occurrence: None)
  Receive Date: 20100621
  Receipt Date: 20100611
  Transmission Date: 20101027
  Serious: Yes (Other)
  Sender: FDA-Public Use
  Company Number: 2010S1000521-001

PATIENT
  Age: 61 Year
  Sex: Female

DRUGS (6)
  1. PITAVASTATIN CALCIUM [Suspect]
     Indication: HYPERCHOLESTEROLAEMIA
     Dosage: 2MG PO
     Route: 048
     Dates: start: 20100108, end: 20100611
  2. BENZBROMARONE [Concomitant]
  3. POTASSIUM CITRATE_SODIUM CITRATE HYDRATE COMBINATION DRUG [Concomitant]
  4. METHOTREXATE [Concomitant]
  5. METHYLPREDNISOLONE [Concomitant]
  6. CETRAXATE HYDROCHLORIDE [Concomitant]

REACTIONS (4)
  - ALANINE AMINOTRANSFERASE INCREASED [None]
  - ASPARTATE AMINOTRANSFERASE INCREASED [None]
  - GAMMA-GLUTAMYLTRANSFERASE INCREASED [None]
  - HEPATIC FUNCTION ABNORMAL [None]
